FAERS Safety Report 6224146-0 (Version None)
Quarter: 2009Q2

REPORT INFORMATION
  Report Type: 
  Country: None (occurrence: None)
  Receive Date: 20090612
  Receipt Date: 20090331
  Transmission Date: 20091009
  Serious: No
  Sender: FDA-Public Use
  Company Number: US-ABBOTT-09P-163-0561752-00

PATIENT
  Sex: Male
  Weight: 106.69 kg

DRUGS (12)
  1. HUMIRA [Suspect]
     Indication: PSORIASIS
     Route: 058
     Dates: start: 20090113, end: 20090113
  2. HUMIRA [Suspect]
     Route: 058
  3. RAPTIVA [Concomitant]
     Indication: PSORIASIS
     Dates: start: 20041001, end: 20090216
  4. METFORMIN HYDROCHLORIDE [Concomitant]
     Indication: DIABETES MELLITUS
     Route: 048
  5. LISINOPRIL [Concomitant]
     Indication: BLOOD PRESSURE
     Route: 048
  6. SIMVASTATIN [Concomitant]
     Indication: BLOOD CHOLESTEROL
     Route: 048
  7. LEVOTHYROXINE [Concomitant]
     Indication: HYPOTHYROIDISM
     Route: 048
  8. GLIPIZIDE [Concomitant]
     Indication: DIABETES MELLITUS
     Route: 048
  9. CLOBETASOL 0.05% [Concomitant]
     Indication: PSORIASIS
     Route: 061
  10. MULTI-VITAMIN [Concomitant]
     Indication: VITAMIN SUPPLEMENTATION
     Route: 048
  11. VITAMIN D [Concomitant]
     Indication: VITAMIN SUPPLEMENTATION
     Route: 048
  12. ASPIRIN [Concomitant]
     Indication: CARDIAC DISORDER
     Route: 048

REACTIONS (2)
  - NASAL CONGESTION [None]
  - PSORIASIS [None]
